FAERS Safety Report 17593604 (Version 1)
Quarter: 2020Q1

REPORT INFORMATION
  Report Type: Report from Study
  Country: UA (occurrence: UA)
  Receive Date: 20200327
  Receipt Date: 20200327
  Transmission Date: 20200409
  Serious: Yes (Hospitalization, Other)
  Sender: FDA-Public Use
  Company Number: UA-BAYER-2019-118391

PATIENT
  Sex: Male
  Weight: 79 kg

DRUGS (33)
  1. BENDAMUSTINE [Suspect]
     Active Substance: BENDAMUSTINE
     Indication: NON-HODGKIN^S LYMPHOMA RECURRENT
     Dosage: 175 MG
     Route: 042
     Dates: start: 20190410, end: 20190410
  2. BENDAMUSTINE [Suspect]
     Active Substance: BENDAMUSTINE
     Indication: NON-HODGKIN^S LYMPHOMA RECURRENT
     Dosage: 90 MG
     Route: 042
     Dates: start: 20190509, end: 20190509
  3. VEROSPIRON [Concomitant]
     Active Substance: SPIRONOLACTONE
     Indication: PROPHYLAXIS
     Dosage: 50 MG, QD
     Route: 048
     Dates: start: 20190326
  4. ASPIRIN CARDIO 100 MG [Concomitant]
     Active Substance: ASPIRIN
  5. COPANLISIB. [Suspect]
     Active Substance: COPANLISIB
     Indication: NON-HODGKIN^S LYMPHOMA RECURRENT
     Dosage: 60 MG
     Route: 042
     Dates: start: 20190417, end: 20190417
  6. RITUXIMAB. [Suspect]
     Active Substance: RITUXIMAB
     Indication: NON-HODGKIN^S LYMPHOMA RECURRENT
     Dosage: 728MG
     Route: 042
     Dates: start: 20190410, end: 20190410
  7. BENDAMUSTINE [Suspect]
     Active Substance: BENDAMUSTINE
     Indication: NON-HODGKIN^S LYMPHOMA RECURRENT
     Dosage: 175 MG
     Route: 042
     Dates: start: 20190411, end: 20190411
  8. BENDAMUSTINE [Suspect]
     Active Substance: BENDAMUSTINE
     Indication: NON-HODGKIN^S LYMPHOMA RECURRENT
     Dosage: 180 MG
     Route: 042
     Dates: start: 20190508, end: 20190508
  9. NIFEDIPIN [Concomitant]
     Active Substance: NIFEDIPINE
     Indication: HYPERTENSION
     Dosage: 10 MG, ONCE
     Route: 048
     Dates: start: 20190410
  10. ACICLOVIR [Concomitant]
     Active Substance: ACYCLOVIR
  11. SIOFOR [Concomitant]
     Active Substance: METFORMIN HYDROCHLORIDE
  12. COPANLISIB. [Suspect]
     Active Substance: COPANLISIB
     Indication: NON-HODGKIN^S LYMPHOMA RECURRENT
     Dosage: 60 MG
     Route: 042
     Dates: start: 20190605, end: 20190605
  13. RITUXIMAB. [Suspect]
     Active Substance: RITUXIMAB
     Indication: NON-HODGKIN^S LYMPHOMA RECURRENT
     Dosage: 728MG
     Route: 042
     Dates: start: 20190508, end: 20190508
  14. ENALAPRIL [Concomitant]
     Active Substance: ENALAPRIL
     Indication: ESSENTIAL HYPERTENSION
     Dosage: 10 MG, BID
     Route: 048
     Dates: start: 20170904
  15. BISEPTOL [Concomitant]
     Active Substance: SULFAMETHOXAZOLE\TRIMETHOPRIM
  16. BENDAMUSTINE [Suspect]
     Active Substance: BENDAMUSTINE
     Indication: NON-HODGKIN^S LYMPHOMA RECURRENT
     Dosage: 90 MG
     Route: 042
     Dates: start: 20190509, end: 20190509
  17. REOSORBILACT [Concomitant]
     Active Substance: CALCIUM CHLORIDE\MAGNESIUM CHLORIDE\POTASSIUM CHLORIDE\SODIUM CHLORIDE\SODIUM LACTATE\SORBITOL
  18. BENDAMUSTINE [Suspect]
     Active Substance: BENDAMUSTINE
     Indication: NON-HODGKIN^S LYMPHOMA RECURRENT
     Dosage: 90 MG
     Route: 042
     Dates: start: 20190605, end: 20190605
  19. ALLOPURINOL. [Concomitant]
     Active Substance: ALLOPURINOL
     Indication: NEOPLASM PROPHYLAXIS
     Dosage: 1 DF, TID
     Route: 048
     Dates: start: 20190410
  20. STEROFUNDIN [Concomitant]
     Active Substance: CALCIUM CHLORIDE\MAGNESIUM CHLORIDE\POTASSIUM CHLORIDE\SODIUM ACETATE\SODIUM CHLORIDE
  21. COPANLISIB. [Suspect]
     Active Substance: COPANLISIB
     Indication: NON-HODGKIN^S LYMPHOMA RECURRENT
     Dosage: 60 MG
     Route: 042
     Dates: start: 20190424, end: 20190424
  22. BENDAMUSTINE [Suspect]
     Active Substance: BENDAMUSTINE
     Indication: NON-HODGKIN^S LYMPHOMA RECURRENT
     Dosage: 90 MG
     Route: 042
     Dates: start: 20190606, end: 20190606
  23. NIFEDIPIN [Concomitant]
     Active Substance: NIFEDIPINE
     Indication: HYPERTENSION
     Dosage: 2 MG, ONCE
     Route: 048
     Dates: start: 20190508, end: 20190508
  24. ONDANSETRON [Concomitant]
     Active Substance: ONDANSETRON
  25. HEPTRAL [ADEMETIONINE] [Concomitant]
  26. INSULIN [Concomitant]
     Active Substance: INSULIN NOS
  27. RITUXIMAB. [Suspect]
     Active Substance: RITUXIMAB
     Indication: NON-HODGKIN^S LYMPHOMA RECURRENT
     Dosage: 325 MG
     Route: 042
     Dates: start: 20190605, end: 20190605
  28. DIMEDROL [Concomitant]
     Active Substance: DIPHENHYDRAMINE
  29. DEXAMETHASONE. [Concomitant]
     Active Substance: DEXAMETHASONE
  30. PARACETAMOL [Concomitant]
     Active Substance: ACETAMINOPHEN
  31. COPANLISIB. [Suspect]
     Active Substance: COPANLISIB
     Indication: NON-HODGKIN^S LYMPHOMA RECURRENT
     Dosage: 30 MG
     Route: 042
     Dates: start: 20190410, end: 20190410
  32. COPANLISIB. [Suspect]
     Active Substance: COPANLISIB
     Indication: NON-HODGKIN^S LYMPHOMA RECURRENT
     Dosage: 60 MG
     Route: 042
     Dates: start: 20190508, end: 20190508
  33. PREDNISOLONE. [Concomitant]
     Active Substance: PREDNISOLONE
     Indication: DERMATITIS ALLERGIC
     Dosage: 30 MG, QD
     Route: 042
     Dates: start: 20190515, end: 20190517

REACTIONS (3)
  - Cytomegalovirus infection [Recovering/Resolving]
  - Cytomegalovirus infection [Recovered/Resolved]
  - Cytomegalovirus infection [Recovered/Resolved]

NARRATIVE: CASE EVENT DATE: 20190619
